FAERS Safety Report 25814376 (Version 1)
Quarter: 2025Q3

REPORT INFORMATION
  Report Type: Spontaneous
  Country: US (occurrence: None)
  Receive Date: 20250917
  Receipt Date: 20250917
  Transmission Date: 20251021
  Serious: No
  Sender: FDA-CTU
  Company Number: None

PATIENT
  Age: 38 Year
  Sex: Female
  Weight: 87.3 kg

DRUGS (4)
  1. MYFEMBREE [Suspect]
     Active Substance: ESTRADIOL HEMIHYDRATE\NORETHINDRONE ACETATE\RELUGOLIX
     Indication: Leiomyoma
     Dosage: FREQUENCY : DAILY;?
     Route: 048
     Dates: start: 20250819, end: 20250910
  2. vitamin D 50,000 units [Concomitant]
  3. BACLOFEN [Concomitant]
     Active Substance: BACLOFEN
  4. ACETAMINOPHEN [Concomitant]
     Active Substance: ACETAMINOPHEN

REACTIONS (3)
  - Mood swings [None]
  - Hyperhidrosis [None]
  - Haemorrhage [None]
